FAERS Safety Report 19073138 (Version 1)
Quarter: 2021Q1

REPORT INFORMATION
  Report Type: Spontaneous
  Country: US (occurrence: US)
  Receive Date: 20210330
  Receipt Date: 20210330
  Transmission Date: 20210420
  Serious: No
  Sender: FDA-Public Use
  Company Number: US-MISSION PHARMACAL COMPANY-2108595

PATIENT
  Age: 86 Year
  Sex: Female

DRUGS (1)
  1. POTASSIUM CITRATE. [Suspect]
     Active Substance: POTASSIUM CITRATE
     Indication: NEPHROLITHIASIS
     Route: 048

REACTIONS (4)
  - Vertigo [Unknown]
  - Dizziness [Unknown]
  - Ear discomfort [Unknown]
  - Blood pressure decreased [Unknown]
